FAERS Safety Report 8591364-6 (Version None)
Quarter: 2012Q3

REPORT INFORMATION
  Report Type: 
  Country: None (occurrence: None)
  Receive Date: 20120726
  Receipt Date: 20120713
  Transmission Date: 20120928
  Serious: Yes (Death, Hospitalization)
  Sender: FDA-Public Use
  Company Number: AEUSA201200362

PATIENT
  Age: 32 Year
  Sex: Female

DRUGS (1)
  1. HYPERRHO [Suspect]
     Indication: PROPHYLAXIS AGAINST RH ISOIMMUNISATION
     Dosage: 1500 IU;1X;IM
     Route: 030
     Dates: start: 20120711, end: 20120711

REACTIONS (10)
  - PULMONARY OEDEMA [None]
  - CHEST DISCOMFORT [None]
  - CAESAREAN SECTION [None]
  - CARDIAC FAILURE [None]
  - MYALGIA [None]
  - FOAMING AT MOUTH [None]
  - CHEST PAIN [None]
  - DYSPNOEA [None]
  - MATERNAL EXPOSURE DURING PREGNANCY [None]
  - MYOCARDIAL INFARCTION [None]
